FAERS Safety Report 23187714 (Version 9)
Quarter: 2024Q3

REPORT INFORMATION
  Report Type: Spontaneous
  Country: US (occurrence: US)
  Receive Date: 20231115
  Receipt Date: 20240923
  Transmission Date: 20241016
  Serious: Yes (Hospitalization, Other)
  Sender: TRAVERE THERAPEUTICS
  Company Number: US-TRAVERE-2023TVT00587

PATIENT
  Age: 67 Year
  Sex: Male

DRUGS (5)
  1. FILSPARI [Suspect]
     Active Substance: SPARSENTAN
     Indication: IgA nephropathy
     Dosage: 200 MG
     Route: 048
     Dates: start: 20231001
  2. FILSPARI [Suspect]
     Active Substance: SPARSENTAN
     Indication: Chronic kidney disease
     Route: 048
     Dates: start: 20231015, end: 202406
  3. FILSPARI [Suspect]
     Active Substance: SPARSENTAN
     Indication: Haematuria
  4. PREDNISONE [Concomitant]
     Active Substance: PREDNISONE
  5. PREDNISONE [Concomitant]
     Active Substance: PREDNISONE

REACTIONS (12)
  - Pneumonia [Unknown]
  - Renal impairment [None]
  - Fatigue [Unknown]
  - Sinusitis [Unknown]
  - Dyspnoea [Unknown]
  - Periorbital swelling [Unknown]
  - Lacrimation increased [Unknown]
  - Ocular hyperaemia [Unknown]
  - Tongue discolouration [Unknown]
  - Aspartate aminotransferase decreased [Unknown]
  - Red blood cell count decreased [Unknown]
  - Haemoglobin decreased [Unknown]

NARRATIVE: CASE EVENT DATE: 20231001
